FAERS Safety Report 6219367-7 (Version None)
Quarter: 2009Q2

REPORT INFORMATION
  Report Type: 
  Country: None (occurrence: None)
  Receive Date: 20090609
  Receipt Date: 20090603
  Transmission Date: 20091009
  Serious: Yes (Hospitalization)
  Sender: FDA-Public Use
  Company Number: DE-ALLERGAN-0907716US

PATIENT
  Age: 45 Year
  Sex: Male

DRUGS (1)
  1. BOTOX [Suspect]
     Indication: MIGRAINE
     Dosage: 75 UNITS, SINGLE
     Route: 030
     Dates: start: 20090519, end: 20090519

REACTIONS (4)
  - ABDOMINAL PAIN UPPER [None]
  - DYSPHAGIA [None]
  - MUSCULAR WEAKNESS [None]
  - NAUSEA [None]
